FAERS Safety Report 9315669 (Version 1)
Quarter: 2013Q2

REPORT INFORMATION
  Report Type: Other
  Country: IT (occurrence: IT)
  Receive Date: 20130529
  Receipt Date: 20130529
  Transmission Date: 20140414
  Serious: Yes (Disabling)
  Sender: FDA-Public Use
  Company Number: IT-ACTAVIS-2013-09779

PATIENT
  Age: 71 Year
  Sex: Female

DRUGS (1)
  1. DONEPEZIL HYDROCHLORIDE (UNKNOWN) [Suspect]
     Indication: DEMENTIA ALZHEIMER^S TYPE
     Dosage: 10 MG, DAILY
     Route: 048
     Dates: start: 20121108, end: 20130423

REACTIONS (1)
  - Drug ineffective [Not Recovered/Not Resolved]
